FAERS Safety Report 7942587-8 (Version None)
Quarter: 2011Q4

REPORT INFORMATION
  Report Type: 
  Country: None (occurrence: None)
  Receive Date: 20111128
  Receipt Date: 20111117
  Transmission Date: 20120403
  Serious: Yes (Life-Threatening, Hospitalization, Disabling)
  Sender: FDA-Public Use
  Company Number: CH-GLAXOSMITHKLINE-B0765257A

PATIENT
  Age: 22 Year
  Sex: Female
  Weight: 90 kg

DRUGS (3)
  1. PROPOFOL [Suspect]
     Indication: ANAESTHESIA
     Route: 042
     Dates: start: 20110901, end: 20110901
  2. LAMOTRIGINE [Suspect]
     Indication: EPILEPSY
     Dosage: 25MG PER DAY
     Route: 048
     Dates: start: 20110826, end: 20110904
  3. DEPAKENE [Suspect]
     Indication: EPILEPSY
     Dosage: 500MG PER DAY
     Route: 048
     Dates: start: 20110601

REACTIONS (18)
  - CHEYNE-STOKES RESPIRATION [None]
  - HEPATIC FUNCTION ABNORMAL [None]
  - RHABDOMYOLYSIS [None]
  - WEIGHT INCREASED [None]
  - DRUG HYPERSENSITIVITY [None]
  - VOMITING [None]
  - DISSEMINATED INTRAVASCULAR COAGULATION [None]
  - CARDIOVASCULAR DISORDER [None]
  - TROPONIN T INCREASED [None]
  - INCORRECT DOSE ADMINISTERED [None]
  - RASH MACULO-PAPULAR [None]
  - ENCEPHALITIS [None]
  - PYREXIA [None]
  - RENAL FAILURE ACUTE [None]
  - MULTI-ORGAN FAILURE [None]
  - INTERNATIONAL NORMALISED RATIO INCREASED [None]
  - RENAL TUBULAR NECROSIS [None]
  - HYPERTRIGLYCERIDAEMIA [None]
